FAERS Safety Report 8220830-8 (Version None)
Quarter: 2012Q1

REPORT INFORMATION
  Report Type: 
  Country: None (occurrence: None)
  Receive Date: 20120320
  Receipt Date: 20120316
  Transmission Date: 20120608
  Serious: Yes (Disabling)
  Sender: FDA-Public Use
  Company Number: NO-PFIZER INC-2012070485

PATIENT
  Age: 60 Year
  Sex: Male

DRUGS (1)
  1. LIPITOR [Suspect]
     Indication: HYPERCHOLESTEROLAEMIA
     Route: 048
     Dates: start: 20000209, end: 20120307

REACTIONS (3)
  - NEUROPATHY PERIPHERAL [None]
  - HYPOAESTHESIA [None]
  - DECREASED VIBRATORY SENSE [None]
